FAERS Safety Report 7012963-9 (Version None)
Quarter: 2010Q3

REPORT INFORMATION
  Report Type: 
  Country: None (occurrence: None)
  Receive Date: 20100924
  Receipt Date: 20100915
  Transmission Date: 20110219
  Serious: Yes (Other)
  Sender: FDA-Public Use
  Company Number: CA-JNJFOC-20100905702

PATIENT
  Sex: Female
  Weight: 87.2 kg

DRUGS (8)
  1. REMICADE [Suspect]
     Indication: CROHN'S DISEASE
     Dosage: 9 INFUSIONS ON UNSPECIFED DATES
     Route: 042
  2. REMICADE [Suspect]
     Route: 042
  3. REMICADE [Suspect]
     Route: 042
  4. LYRICA [Concomitant]
  5. AVANDIA [Concomitant]
  6. VERAPAMIL [Concomitant]
  7. FENOFIBRATE [Concomitant]
  8. APO-QUININE [Concomitant]
     Indication: MUSCLE SPASMS

REACTIONS (1)
  - BREAST CANCER [None]
